FAERS Safety Report 8517665-5 (Version None)
Quarter: 2012Q3

REPORT INFORMATION
  Report Type: 
  Country: None (occurrence: None)
  Receive Date: 20120718
  Receipt Date: 20120711
  Transmission Date: 20120928
  Serious: Yes (Hospitalization)
  Sender: FDA-Public Use
  Company Number: US-BMSGILMSD-2012-0057941

PATIENT

DRUGS (1)
  1. ATRIPLA [Suspect]
     Indication: HIV INFECTION
     Dosage: UNK
     Dates: start: 20080101

REACTIONS (4)
  - DEPRESSION [None]
  - ABNORMAL DREAMS [None]
  - SEXUAL DYSFUNCTION [None]
  - SHIGELLA INFECTION [None]
